FAERS Safety Report 18566614 (Version 1)
Quarter: 2020Q4

REPORT INFORMATION
  Report Type: Spontaneous
  Country: US (occurrence: US)
  Receive Date: 20201201
  Receipt Date: 20201201
  Transmission Date: 20210114
  Serious: Yes (Other)
  Sender: FDA-Public Use
  Company Number: US-TEVA-2020-US-1853210

PATIENT

DRUGS (1)
  1. TRAZODONE HYDROCHLORIDE TEVA [Suspect]
     Active Substance: TRAZODONE HYDROCHLORIDE
     Dosage: I HAVE USED FOR 12 YEARS
     Route: 065

REACTIONS (6)
  - Withdrawal syndrome [Unknown]
  - Depression [Unknown]
  - Tremor [Unknown]
  - Hyperhidrosis [Unknown]
  - Product formulation issue [Unknown]
  - Illness [Not Recovered/Not Resolved]
